FAERS Safety Report 6896737-5 (Version None)
Quarter: 2010Q3

REPORT INFORMATION
  Report Type: 
  Country: None (occurrence: None)
  Receive Date: 20100802
  Receipt Date: 20070126
  Transmission Date: 20110219
  Serious: Yes (Other)
  Sender: FDA-Public Use
  Company Number: US-PFIZER INC-2006128840

PATIENT
  Sex: Female
  Weight: 74.4 kg

DRUGS (1)
  1. LYRICA [Suspect]
     Indication: BACK PAIN
     Route: 048
     Dates: start: 20060801, end: 20061201

REACTIONS (1)
  - WEIGHT INCREASED [None]
